FAERS Safety Report 8579741-0 (Version None)
Quarter: 2012Q3

REPORT INFORMATION
  Report Type: 
  Country: None (occurrence: None)
  Receive Date: 20120808
  Receipt Date: 20120803
  Transmission Date: 20120928
  Serious: Yes (Death)
  Sender: FDA-Public Use
  Company Number: PHHY2012JP064037

PATIENT
  Sex: Female
  Weight: 81 kg

DRUGS (8)
  1. S-1+CDDP [Concomitant]
     Indication: GASTRIC CANCER STAGE IV
  2. NSAID'S [Concomitant]
     Indication: BACK PAIN
  3. LOXOPROFEN [Concomitant]
     Dosage: UNK, TID
  4. OXYCODONE HCL [Concomitant]
     Indication: BACK PAIN
     Dosage: 10 MG, DAILY
  5. CARBAMAZEPINE [Suspect]
     Indication: NEURALGIA
     Dosage: 200 MG, DAILY
     Route: 048
  6. OMEPRAZOLE [Concomitant]
  7. FENTANYL [Concomitant]
  8. DICLOFENAC [Concomitant]
     Indication: ANALGESIC THERAPY
     Dosage: 100 MG, DAILY

REACTIONS (2)
  - SOMNOLENCE [None]
  - PNEUMONIA [None]
